FAERS Safety Report 5167521-8 (Version None)
Quarter: 2006Q4

REPORT INFORMATION
  Report Type: 
  Country: None (occurrence: None)
  Receive Date: 20060830
  Receipt Date: 20060526
  Transmission Date: 20070319
  Serious: Yes (Other)
  Sender: FDA-Public Use
  Company Number: 225139

PATIENT
  Age: 63 Year
  Sex: Female

DRUGS (2)
  1. XOLAIR [Suspect]
     Indication: ASTHMA
     Dosage: 375
     Dates: start: 20030724
  2. PULMICORT [Concomitant]

REACTIONS (1)
  - PAPILLARY THYROID CANCER [None]
